FAERS Safety Report 6905044-3 (Version None)
Quarter: 2010Q3

REPORT INFORMATION
  Report Type: 
  Country: None (occurrence: None)
  Receive Date: 20100804
  Receipt Date: 20090828
  Transmission Date: 20110219
  Serious: No
  Sender: FDA-Public Use
  Company Number: US-PFIZER INC-2009233528

PATIENT
  Sex: Female
  Weight: 49.887 kg

DRUGS (1)
  1. LYRICA [Suspect]
     Indication: NEURALGIA
     Dosage: UNK
     Dates: end: 20090601

REACTIONS (3)
  - HYPERSENSITIVITY [None]
  - PAIN [None]
  - SOMNOLENCE [None]
